FAERS Safety Report 5070507-5 (Version None)
Quarter: 2006Q3

REPORT INFORMATION
  Report Type: 
  Country: None (occurrence: None)
  Receive Date: 20060804
  Receipt Date: 20060714
  Transmission Date: 20061208
  Serious: Yes (Hospitalization)
  Sender: FDA-Public Use
  Company Number: JP-SP-2006-01809

PATIENT
  Age: 71 Year
  Sex: Male

DRUGS (2)
  1. IMMUCYST [Suspect]
     Indication: BLADDER CANCER
     Route: 043
     Dates: start: 20060704, end: 20060711
  2. PROPIVERINE HYDROCHLORIDE [Concomitant]
     Route: 048
     Dates: start: 20060531, end: 20060726

REACTIONS (1)
  - PYREXIA [None]
